FAERS Safety Report 9094016 (Version 2)
Quarter: 2013Q3

REPORT INFORMATION
  Report Type: Report from Study
  Country: IL (occurrence: IL)
  Receive Date: 20130201
  Receipt Date: 20130917
  Transmission Date: 20140515
  Serious: Yes (Death)
  Sender: FDA-Public Use
  Company Number: IL-ROCHE-1186748

PATIENT
  Sex: 0

DRUGS (6)
  1. BEVACIZUMAB [Suspect]
     Indication: COLORECTAL CANCER METASTATIC
     Route: 042
  2. OXALIPLATIN [Suspect]
     Indication: COLORECTAL CANCER METASTATIC
     Dosage: ON DAY1
     Route: 065
  3. FOLINIC ACID [Suspect]
     Indication: COLORECTAL CANCER METASTATIC
     Route: 065
  4. FLUOROURACIL [Suspect]
     Indication: COLORECTAL CANCER METASTATIC
     Dosage: FOLFOX: OVER 4-MIN, FOLFIRI: BOLUS
     Route: 065
  5. FLUOROURACIL [Suspect]
     Dosage: FOLFOX:22-H INFUSION OF 600 MG/M2 ON DAYS 1 TO 2 EVERY 2 WEEKS, FOLFIRI:46-H INFUSION OF 1,200 MG/M2
     Route: 065
  6. IRINOTECAN [Suspect]
     Indication: COLORECTAL CANCER METASTATIC
     Dosage: FOR 1.5 H ON DAY 1
     Route: 042

REACTIONS (4)
  - Haemorrhage [Fatal]
  - Post procedural pneumonia [Fatal]
  - Multi-organ failure [Fatal]
  - Haemodynamic instability [Fatal]
